FAERS Safety Report 23044884 (Version 2)
Quarter: 2023Q4

REPORT INFORMATION
  Report Type: Spontaneous
  Country: US (occurrence: US)
  Receive Date: 20231009
  Receipt Date: 20231121
  Transmission Date: 20240109
  Serious: No
  Sender: FDA-Public Use
  Company Number: US-PFIZER INC-PV202300165995

PATIENT
  Age: 79 Year
  Sex: Female

DRUGS (3)
  1. IBRANCE [Suspect]
     Active Substance: PALBOCICLIB
     Indication: Breast cancer female
     Dosage: 75 MG, CYCLIC (TAKE 1 TABLET FOR 7 DAYS THEN OFF FOR 7 DAYS)
  2. IBRANCE [Suspect]
     Active Substance: PALBOCICLIB
     Indication: Metastases to pleura
  3. GABAPENTIN [Concomitant]
     Active Substance: GABAPENTIN
     Dosage: 300 MG, 3X/DAY

REACTIONS (2)
  - Off label use [Unknown]
  - Hypoacusis [Unknown]
